FAERS Safety Report 20601772 (Version 1)
Quarter: 2022Q1

REPORT INFORMATION
  Report Type: Spontaneous
  Country: US (occurrence: None)
  Receive Date: 20220315
  Receipt Date: 20220315
  Transmission Date: 20220423
  Serious: Yes (Other)
  Sender: FDA-Public Use
  Company Number: None

PATIENT
  Age: 49 Year
  Sex: Female
  Weight: 74.25 kg

DRUGS (6)
  1. ABSORBINE JR. BACK [Suspect]
     Active Substance: MENTHOL
     Indication: Ligament sprain
     Dosage: OTHER STRENGTH : NA;?OTHER QUANTITY : 1 PATCH(ES);?FREQUENCY : EVERY 8 HOURS;?
     Route: 062
     Dates: start: 20220203, end: 20220203
  2. OMEPRAZOLE [Concomitant]
     Active Substance: OMEPRAZOLE
  3. HYZAAR [Concomitant]
     Active Substance: HYDROCHLOROTHIAZIDE\LOSARTAN POTASSIUM
  4. ZOLOFT [Concomitant]
     Active Substance: SERTRALINE HYDROCHLORIDE
  5. GLUCOSAMINE [Concomitant]
     Active Substance: GLUCOSAMINE
  6. VITAMIN B [Concomitant]
     Active Substance: VITAMIN B

REACTIONS (12)
  - Application site warmth [None]
  - Application site pain [None]
  - Application site vesicles [None]
  - Application site burn [None]
  - Application site injury [None]
  - Hyperaesthesia [None]
  - Dermatitis [None]
  - Skin hyperpigmentation [None]
  - Application site scar [None]
  - Loss of personal independence in daily activities [None]
  - Discomfort [None]
  - Sleep disorder [None]

NARRATIVE: CASE EVENT DATE: 20220203
